FAERS Safety Report 23946810 (Version 1)
Quarter: 2024Q2

REPORT INFORMATION
  Report Type: Spontaneous
  Country: US (occurrence: US)
  Receive Date: 20240606
  Receipt Date: 20240606
  Transmission Date: 20240715
  Serious: No
  Sender: FDA-Public Use
  Company Number: US-BAYER-2024A079240

PATIENT

DRUGS (3)
  1. CLARITIN [Suspect]
     Active Substance: LORATADINE
     Indication: Multiple allergies
     Route: 065
  2. CLARITIN [Suspect]
     Active Substance: LORATADINE
     Indication: Urticaria
  3. CLARITIN [Suspect]
     Active Substance: LORATADINE
     Indication: Pruritus

REACTIONS (1)
  - Wrong technique in product usage process [Unknown]
